FAERS Safety Report 7069547-6 (Version None)
Quarter: 2010Q4

REPORT INFORMATION
  Report Type: 
  Country: None (occurrence: None)
  Receive Date: 20101028
  Receipt Date: 20100216
  Transmission Date: 20110411
  Serious: No
  Sender: FDA-Public Use
  Company Number: US-WYE-H13641210

PATIENT
  Age: 51 Year
  Sex: Female

DRUGS (4)
  1. EFFEXOR [Suspect]
     Indication: PANIC DISORDER WITH AGORAPHOBIA
     Dates: start: 20070301, end: 20070101
  2. EFFEXOR [Suspect]
     Dosage: DOSE WAS RAISED EVERY OTHER DAY BY 3.125 MG UNTIL 15.625 MG/DAY WAS REACHED
     Dates: start: 20070101, end: 20070101
  3. EFFEXOR [Suspect]
     Dates: start: 20070101, end: 20070701
  4. EFFEXOR [Suspect]
     Dosage: TITRATED UP BY AN EXTRA 3.125 MG EACH DAY UNTIL, AT 25 MG/DAY
     Dates: start: 20070701

REACTIONS (6)
  - ABNORMAL DREAMS [None]
  - CONSTIPATION [None]
  - DRUG EFFECT DECREASED [None]
  - HEADACHE [None]
  - RESTLESSNESS [None]
  - TENSION [None]
